FAERS Safety Report 25223193 (Version 1)
Quarter: 2025Q2

REPORT INFORMATION
  Report Type: Spontaneous
  Country: US (occurrence: US)
  Receive Date: 20250422
  Receipt Date: 20250422
  Transmission Date: 20250716
  Serious: Yes (Other)
  Sender: COOPERSURGICAL
  Company Number: US-COOPERSURGICAL, INC.-2025CPS002941

PATIENT
  Age: 27 Year
  Sex: Female
  Weight: 65.76 kg

DRUGS (3)
  1. PARAGARD T 380A [Suspect]
     Active Substance: COPPER
     Dates: start: 20161227
  2. SUMATRIPTAN [Concomitant]
     Active Substance: SUMATRIPTAN
     Dates: start: 201905, end: 202005
  3. NORTRIPTYLINE [Concomitant]
     Active Substance: NORTRIPTYLINE
     Dates: start: 201904, end: 202005

REACTIONS (8)
  - Cervix carcinoma stage 0 [Unknown]
  - Reproductive complication associated with device [Not Recovered/Not Resolved]
  - Cervix disorder [Not Recovered/Not Resolved]
  - Device breakage [Not Recovered/Not Resolved]
  - Foreign body in reproductive tract [Not Recovered/Not Resolved]
  - Complication of device removal [Not Recovered/Not Resolved]
  - Embedded device [Not Recovered/Not Resolved]
  - Pelvic pain [Recovered/Resolved]

NARRATIVE: CASE EVENT DATE: 20170201
